FAERS Safety Report 9692885 (Version 2)
Quarter: 2013Q4

REPORT INFORMATION
  Report Type: Spontaneous
  Country: TR (occurrence: TR)
  Receive Date: 20131118
  Receipt Date: 20131118
  Transmission Date: 20140711
  Serious: Yes (Other)
  Sender: FDA-Public Use
  Company Number: PHHY2012TR112586

PATIENT
  Sex: 0

DRUGS (4)
  1. NIFEDIPINE [Suspect]
     Route: 064
  2. AMOXICILLIN [Suspect]
     Route: 064
  3. BETAMETHASONE [Suspect]
     Route: 064
  4. PARENTERAL NUTRITION [Suspect]

REACTIONS (5)
  - Bradycardia foetal [Unknown]
  - Premature baby [Unknown]
  - Low birth weight baby [Unknown]
  - Apgar score low [Unknown]
  - Foetal exposure during pregnancy [Unknown]
